FAERS Safety Report 23401321 (Version 1)
Quarter: 2024Q1

REPORT INFORMATION
  Report Type: Spontaneous
  Country: US (occurrence: US)
  Receive Date: 20240115
  Receipt Date: 20240115
  Transmission Date: 20240409
  Serious: Yes (Death, Other)
  Sender: FDA-Public Use
  Company Number: US-GLAXOSMITHKLINE-US2024005118

PATIENT

DRUGS (1)
  1. LAMICTAL [Suspect]
     Active Substance: LAMOTRIGINE
     Indication: Product used for unknown indication
     Dosage: 25 MG, QD

REACTIONS (1)
  - Death [Fatal]

NARRATIVE: CASE EVENT DATE: 20231112
